FAERS Safety Report 17184481 (Version 1)
Quarter: 2019Q4

REPORT INFORMATION
  Report Type: Spontaneous
  Country: US (occurrence: US)
  Receive Date: 20191220
  Receipt Date: 20191220
  Transmission Date: 20200122
  Serious: No
  Sender: FDA-Public Use
  Company Number: US-PFIZER INC-2019547036

PATIENT
  Age: 51 Year
  Sex: Female
  Weight: 129.2 kg

DRUGS (2)
  1. NEURONTIN [Suspect]
     Active Substance: GABAPENTIN
     Dosage: A LOW DOSE
     Dates: start: 2012
  2. NEURONTIN [Suspect]
     Active Substance: GABAPENTIN
     Dosage: 300 MG, UNK

REACTIONS (4)
  - Headache [Unknown]
  - Pain in extremity [Unknown]
  - Prescription drug used without a prescription [Unknown]
  - Drug ineffective [Unknown]
